FAERS Safety Report 13977761 (Version 3)
Quarter: 2017Q4

REPORT INFORMATION
  Report Type: Spontaneous
  Country: US (occurrence: US)
  Receive Date: 20170915
  Receipt Date: 20171019
  Transmission Date: 20180321
  Serious: Yes (Other)
  Sender: FDA-Public Use
  Company Number: US-BAUSCH-BL-2017-027106

PATIENT
  Age: 61 Year
  Sex: Male
  Weight: 90.8 kg

DRUGS (4)
  1. LIBRAX [Suspect]
     Active Substance: CHLORDIAZEPOXIDE HYDROCHLORIDE\CLIDINIUM BROMIDE
     Route: 048
     Dates: start: 2015
  2. LIBRAX [Suspect]
     Active Substance: CHLORDIAZEPOXIDE HYDROCHLORIDE\CLIDINIUM BROMIDE
     Route: 048
     Dates: start: 2017
  3. LIBRAX [Suspect]
     Active Substance: CHLORDIAZEPOXIDE HYDROCHLORIDE\CLIDINIUM BROMIDE
     Indication: DYSPEPSIA
     Dosage: STARTED IN JUNE OR JULY OF 1996?ONE CAPSULE PER MEAL
     Route: 048
     Dates: start: 1996
  4. BENTYL [Concomitant]
     Active Substance: DICYCLOMINE HYDROCHLORIDE
     Indication: PRODUCT USED FOR UNKNOWN INDICATION

REACTIONS (5)
  - Adhesiolysis [Unknown]
  - Injury [Unknown]
  - Multiple fractures [Unknown]
  - Treatment noncompliance [Unknown]
  - Rocky mountain spotted fever [Unknown]

NARRATIVE: CASE EVENT DATE: 2006
